FAERS Safety Report 4746715-7 (Version None)
Quarter: 2005Q3

REPORT INFORMATION
  Report Type: 
  Country: None (occurrence: None)
  Receive Date: 20050817
  Receipt Date: 20050815
  Transmission Date: 20060218
  Serious: Yes (Hospitalization)
  Sender: FDA-Public Use
  Company Number: US-GLAXOSMITHKLINE-A0570226A

PATIENT
  Sex: Male

DRUGS (10)
  1. ADVAIR DISKUS 100/50 [Suspect]
     Indication: DRUG USE FOR UNKNOWN INDICATION
     Dosage: 1PUFF TWICE PER DAY
     Route: 055
  2. CALCIUM GLUCONATE [Concomitant]
  3. METOPROLOL [Concomitant]
  4. PREVACID [Concomitant]
  5. TYLENOL (CAPLET) [Concomitant]
  6. DETROL [Concomitant]
  7. ZOCOR [Concomitant]
  8. COLACE [Concomitant]
  9. ZOSYN [Concomitant]
  10. LOVENOX [Concomitant]

REACTIONS (3)
  - BACTERAEMIA [None]
  - DEHYDRATION [None]
  - UROSEPSIS [None]
